FAERS Safety Report 19278202 (Version 1)
Quarter: 2021Q2

REPORT INFORMATION
  Report Type: Spontaneous
  Country: US (occurrence: US)
  Receive Date: 20210520
  Receipt Date: 20210520
  Transmission Date: 20210717
  Serious: Yes (Other)
  Sender: FDA-Public Use
  Company Number: US-SUN PHARMACEUTICAL INDUSTRIES LTD-2021R1-297233

PATIENT
  Age: 62 Year
  Weight: 127 kg

DRUGS (4)
  1. WARFARIN [Interacting]
     Active Substance: WARFARIN
     Indication: AORTIC ANEURYSM
     Dosage: 11.25 MILLIGRAM, DAILY
     Route: 065
  2. REMDESIVIR. [Interacting]
     Active Substance: REMDESIVIR
     Indication: COVID-19
     Dosage: 100 MILLIGRAM, DAILY
     Route: 042
  3. DEXAMETHASONE. [Suspect]
     Active Substance: DEXAMETHASONE
     Indication: COVID-19
     Dosage: 6 MILLIGRAM, DAILY
     Route: 048
  4. REMDESIVIR. [Interacting]
     Active Substance: REMDESIVIR
     Dosage: 200 MILLIGRAM, DAILY
     Route: 042

REACTIONS (2)
  - Drug interaction [Unknown]
  - International normalised ratio increased [Unknown]
